FAERS Safety Report 16839640 (Version 3)
Quarter: 2019Q4

REPORT INFORMATION
  Report Type: Spontaneous
  Country: TR (occurrence: BG)
  Receive Date: 20190923
  Receipt Date: 20191028
  Transmission Date: 20200122
  Serious: No
  Sender: FDA-Public Use
  Company Number: TR-BAYER-2019-164917

PATIENT
  Age: 52 Year
  Sex: Male
  Weight: 79 kg

DRUGS (2)
  1. NEXAVAR [Suspect]
     Active Substance: SORAFENIB
     Indication: HEPATOCELLULAR CARCINOMA
     Dosage: 600 MG2;  TABLET AT THE MORNING, 1 TABLET AT THE EVENING
     Route: 048
     Dates: end: 2019
  2. NEXAVAR [Suspect]
     Active Substance: SORAFENIB
     Indication: HEPATOCELLULAR CARCINOMA
     Dosage: DAILY DOSE 800 MG
     Route: 048
     Dates: start: 20190822

REACTIONS (4)
  - Pain in extremity [Recovered/Resolved]
  - Erythema [Recovering/Resolving]
  - Blister [None]
  - Pain [None]

NARRATIVE: CASE EVENT DATE: 20190902
